FAERS Safety Report 13347588 (Version 3)
Quarter: 2017Q2

REPORT INFORMATION
  Report Type: Spontaneous
  Country: US (occurrence: US)
  Receive Date: 20170317
  Receipt Date: 20170519
  Transmission Date: 20170830
  Serious: Yes (Hospitalization)
  Sender: FDA-Public Use
  Company Number: US-GLAXOSMITHKLINE-US2017037749

PATIENT
  Age: 40 Year
  Sex: Female

DRUGS (1)
  1. TRANSDERM SCOP [Suspect]
     Active Substance: SCOPOLAMINE
     Indication: MOTION SICKNESS
     Dosage: UNK
     Route: 062
     Dates: start: 20170113, end: 20170121

REACTIONS (4)
  - Condition aggravated [Not Recovered/Not Resolved]
  - Dehydration [Recovered/Resolved]
  - Vision blurred [Not Recovered/Not Resolved]
  - Constipation [Recovered/Resolved]

NARRATIVE: CASE EVENT DATE: 20170113
